FAERS Safety Report 18058985 (Version 1)
Quarter: 2020Q3

REPORT INFORMATION
  Report Type: Spontaneous
  Country: US (occurrence: US)
  Receive Date: 20200723
  Receipt Date: 20200723
  Transmission Date: 20201103
  Serious: No
  Sender: FDA-Public Use
  Company Number: US-SA-2020SA189287

PATIENT

DRUGS (1)
  1. AVAPRO [Suspect]
     Active Substance: IRBESARTAN
     Indication: BLOOD PRESSURE MEASUREMENT
     Dosage: 300 MG

REACTIONS (3)
  - Rash [Unknown]
  - Product availability issue [Unknown]
  - Dizziness [Unknown]
